FAERS Safety Report 17923858 (Version 1)
Quarter: 2020Q2

REPORT INFORMATION
  Report Type: Spontaneous
  Country: CO (occurrence: CO)
  Receive Date: 20200622
  Receipt Date: 20200622
  Transmission Date: 20200714
  Serious: Yes (Other)
  Sender: FDA-Public Use
  Company Number: CO-ROCHE-2628037

PATIENT
  Sex: Female

DRUGS (1)
  1. XOLAIR [Suspect]
     Active Substance: OMALIZUMAB
     Indication: ASTHMA
     Dosage: 2 DF,  EVERY 15 DAYS, (3 YEARS AGO)
     Route: 065

REACTIONS (3)
  - Abdominal pain [Unknown]
  - Hepatic cirrhosis [Unknown]
  - Hepatomegaly [Unknown]
